FAERS Safety Report 5255354-3 (Version None)
Quarter: 2007Q1

REPORT INFORMATION
  Report Type: 
  Country: None (occurrence: None)
  Receive Date: 20070305
  Receipt Date: 20070226
  Transmission Date: 20070707
  Serious: Yes (Other)
  Sender: FDA-Public Use
  Company Number: PHNR2007AU00658

PATIENT
  Sex: Male

DRUGS (1)
  1. VOLTAREN [Suspect]
     Dosage: 50 MG, BID
     Route: 048
     Dates: start: 20070207, end: 20070208

REACTIONS (12)
  - DIZZINESS [None]
  - DRY THROAT [None]
  - ERYTHEMA [None]
  - FEELING COLD [None]
  - FEELING HOT [None]
  - GLOSSODYNIA [None]
  - HYPERHIDROSIS [None]
  - MALAISE [None]
  - NAUSEA [None]
  - PALLOR [None]
  - PRURITUS [None]
  - RASH PRURITIC [None]
